FAERS Safety Report 23708772 (Version 1)
Quarter: 2024Q2

REPORT INFORMATION
  Report Type: Spontaneous
  Country: CN (occurrence: None)
  Receive Date: 20240404
  Receipt Date: 20240404
  Transmission Date: 20240715
  Serious: Yes (Death, Other)
  Sender: FDA-Public Use
  Company Number: 2024A080143

PATIENT
  Age: 66 Year
  Sex: Male

DRUGS (7)
  1. GEFITINIB [Suspect]
     Active Substance: GEFITINIB
     Indication: Lung adenocarcinoma
     Route: 048
  2. OSIMERTINIB [Suspect]
     Active Substance: OSIMERTINIB
     Indication: Lung adenocarcinoma
     Route: 048
  3. EVEROLIMUS [Concomitant]
     Active Substance: EVEROLIMUS
  4. NEDAPLATIN [Concomitant]
     Active Substance: NEDAPLATIN
     Dosage: 180 MG
  5. PEMETREXED [Concomitant]
     Active Substance: PEMETREXED
     Dosage: 900 MG
  6. BEVACIZUMAB [Concomitant]
     Active Substance: BEVACIZUMAB
     Dosage: 600 MG
  7. CAMRELIZUMAB [Concomitant]
     Active Substance: CAMRELIZUMAB
     Dosage: 600 MG

REACTIONS (1)
  - Malignant neoplasm progression [Fatal]
